FAERS Safety Report 5157496-X (Version None)
Quarter: 2006Q4

REPORT INFORMATION
  Report Type: 
  Country: None (occurrence: None)
  Receive Date: 20061127
  Receipt Date: 20060127
  Transmission Date: 20070319
  Serious: Yes (Life-Threatening)
  Sender: FDA-Public Use
  Company Number: JP-JPN-A200600375

PATIENT
  Age: 19 Year
  Sex: Male

DRUGS (2)
  1. ALKERAN [Suspect]
     Route: 042
     Dates: start: 20020301, end: 20020301
  2. THIOTEPA [Concomitant]
     Route: 065
     Dates: start: 20020301, end: 20020301

REACTIONS (1)
  - FEBRILE NEUTROPENIA [None]
